FAERS Safety Report 25363308 (Version 1)
Quarter: 2025Q2

REPORT INFORMATION
  Report Type: Spontaneous
  Country: CN (occurrence: CN)
  Receive Date: 20250527
  Receipt Date: 20250527
  Transmission Date: 20250716
  Serious: Yes (Life-Threatening, Hospitalization, Other)
  Sender: PFIZER
  Company Number: CN-MLMSERVICE-20240401-4925557-1

PATIENT
  Age: 24 Year
  Sex: Female
  Weight: 49.5 kg

DRUGS (11)
  1. DEXMEDETOMIDINE HYDROCHLORIDE [Suspect]
     Active Substance: DEXMEDETOMIDINE HYDROCHLORIDE
     Indication: Anaesthesia
  2. MIDAZOLAM [Suspect]
     Active Substance: MIDAZOLAM
     Indication: Anaesthesia
  3. SUFENTANIL [Suspect]
     Active Substance: SUFENTANIL
     Indication: Anaesthesia
  4. SUFENTANIL [Suspect]
     Active Substance: SUFENTANIL
  5. PROPOFOL [Suspect]
     Active Substance: PROPOFOL
     Indication: Anaesthesia
  6. VECURONIUM BROMIDE [Suspect]
     Active Substance: VECURONIUM BROMIDE
     Indication: Anaesthesia
  7. SEVOFLURANE [Suspect]
     Active Substance: SEVOFLURANE
     Indication: Anaesthesia
     Route: 055
  8. REMIFENTANIL [Suspect]
     Active Substance: REMIFENTANIL
     Indication: Anaesthesia
  9. NEOSTIGMINE [Suspect]
     Active Substance: NEOSTIGMINE
     Indication: Anaesthesia
  10. FLUMAZENIL [Suspect]
     Active Substance: FLUMAZENIL
     Indication: Anaesthesia
  11. ATROPINE [Suspect]
     Active Substance: ATROPINE
     Indication: Anaesthesia

REACTIONS (2)
  - Negative pressure pulmonary oedema [Recovered/Resolved]
  - Sinus tachycardia [Recovered/Resolved]
